FAERS Safety Report 18996960 (Version 1)
Quarter: 2021Q1

REPORT INFORMATION
  Report Type: Spontaneous
  Country: US (occurrence: US)
  Receive Date: 20210310
  Receipt Date: 20210310
  Transmission Date: 20210420
  Serious: Yes (Other)
  Sender: FDA-Public Use
  Company Number: None

PATIENT
  Age: 61 Year
  Sex: Female
  Weight: 98.88 kg

DRUGS (2)
  1. SYNTHROID [Suspect]
     Active Substance: LEVOTHYROXINE SODIUM
     Indication: HYPOTHYROIDISM
     Route: 048
  2. LEVOTHYROXINE 137MG [Suspect]
     Active Substance: LEVOTHYROXINE
     Route: 048

REACTIONS (8)
  - Product substitution issue [None]
  - Vertigo [None]
  - Palpitations [None]
  - Syncope [None]
  - Nausea [None]
  - Insomnia [None]
  - Dizziness [None]
  - Hot flush [None]

NARRATIVE: CASE EVENT DATE: 20210120
